FAERS Safety Report 11081074 (Version 1)
Quarter: 2015Q2

REPORT INFORMATION
  Report Type: Report from Study
  Country: US (occurrence: US)
  Receive Date: 20150501
  Receipt Date: 20150501
  Transmission Date: 20150821
  Serious: Yes (Hospitalization)
  Sender: FDA-Public Use
  Company Number: US-MERCK-1504USA023384

PATIENT
  Age: 40 Year
  Sex: Male
  Weight: 71.3 kg

DRUGS (3)
  1. IDARUBICIN [Suspect]
     Active Substance: IDARUBICIN
     Indication: ACUTE MYELOID LEUKAEMIA
     Dosage: 12MG/M2/DAY, DAYS 4-6
     Route: 042
     Dates: start: 20150411, end: 20150413
  2. CYTARABINE. [Suspect]
     Active Substance: CYTARABINE
     Indication: ACUTE MYELOID LEUKAEMIA
     Dosage: 1500MG/M2/DAY, DAYS 4-7
     Route: 041
     Dates: start: 20150411, end: 20150415
  3. VORINOSTAT [Suspect]
     Active Substance: VORINOSTAT
     Indication: ACUTE MYELOID LEUKAEMIA
     Dosage: 500 MG, TID
     Route: 048
     Dates: start: 20150408, end: 20150410

REACTIONS (2)
  - Oesophagitis [Recovering/Resolving]
  - Gastritis [Recovering/Resolving]

NARRATIVE: CASE EVENT DATE: 20150419
